FAERS Safety Report 10958503 (Version 17)
Quarter: 2016Q3

REPORT INFORMATION
  Report Type: Spontaneous
  Country: US (occurrence: US)
  Receive Date: 20150326
  Receipt Date: 20160930
  Transmission Date: 20161109
  Serious: Yes (Hospitalization, Other)
  Sender: FDA-Public Use
  Company Number: US-GLAXOSMITHKLINE-US2015GSK039530

PATIENT
  Age: 55 Year
  Sex: Male

DRUGS (15)
  1. FLOLAN [Suspect]
     Active Substance: EPOPROSTENOL SODIUM
     Dosage: 50 NG/KG/MIN, CO
     Route: 042
  2. FLOLAN [Suspect]
     Active Substance: EPOPROSTENOL SODIUM
     Indication: PULMONARY ARTERIAL HYPERTENSION
     Dosage: 41.5 NG/KG/MIN CONTINUOUSLY
     Route: 042
     Dates: start: 20070320
  3. FLOLAN [Suspect]
     Active Substance: EPOPROSTENOL SODIUM
     Dosage: 50 NG/KG/MIN CONTINUOUS
     Dates: start: 20070321
  4. FLOLAN [Suspect]
     Active Substance: EPOPROSTENOL SODIUM
     Dosage: 50 NG/KG/MIN CONTINUOUSLY
     Route: 042
     Dates: start: 20070321
  5. FLOLAN [Suspect]
     Active Substance: EPOPROSTENOL SODIUM
     Dosage: 41.5 NG/KG/MIN CONTINUOUSLY
  6. FLOLAN [Suspect]
     Active Substance: EPOPROSTENOL SODIUM
     Indication: PULMONARY ARTERIAL HYPERTENSION
     Dosage: UNK
     Dates: start: 20070321
  7. COUMADIN [Concomitant]
     Active Substance: WARFARIN SODIUM
  8. FLOLAN [Suspect]
     Active Substance: EPOPROSTENOL SODIUM
     Dosage: 50 NG/KG/MIN (CONCENTRATION 75,000 NG/ML, PUMP RATE 93 ML/DAY, VIAL STRENGTH 1.5), CO
     Route: 042
  9. FLOLAN [Suspect]
     Active Substance: EPOPROSTENOL SODIUM
     Indication: PULMONARY ARTERIAL HYPERTENSION
  10. TRACLEER [Concomitant]
     Active Substance: BOSENTAN
  11. FLOLAN [Suspect]
     Active Substance: EPOPROSTENOL SODIUM
     Dosage: 50 NG/KG/MIN (CONCENTRATION 75,000 NG/ML, PUMP RATE 93 ML/DAY, VIAL STRENGTH 1.5 MG), CO
  12. FLOLAN [Suspect]
     Active Substance: EPOPROSTENOL SODIUM
     Indication: PULMONARY ARTERIAL HYPERTENSION
     Dosage: 75,000 NG/ML, PUMP RATE 77 ML/DAY, VIAL STRENGTH 1.5 MG), CO
     Route: 042
  13. FLOLAN [Suspect]
     Active Substance: EPOPROSTENOL SODIUM
     Dosage: 22 NG/KG/MIN CONTINUOUS
     Route: 042
  14. XARELTO [Suspect]
     Active Substance: RIVAROXABAN
     Indication: PRODUCT USED FOR UNKNOWN INDICATION
  15. ADCIRCA [Concomitant]
     Active Substance: TADALAFIL

REACTIONS (18)
  - Catheter management [Unknown]
  - Pain in extremity [Unknown]
  - Catheter site erythema [Not Recovered/Not Resolved]
  - Haematochezia [Unknown]
  - Adverse drug reaction [Unknown]
  - Headache [Unknown]
  - Pain in jaw [Unknown]
  - Therapeutic procedure [Unknown]
  - Catheter site pain [Not Recovered/Not Resolved]
  - Portal hypertensive gastropathy [Unknown]
  - Syncope [Unknown]
  - Pancreatitis acute [Unknown]
  - Catheter site infection [Not Recovered/Not Resolved]
  - Catheter site discharge [Not Recovered/Not Resolved]
  - Atrial fibrillation [Unknown]
  - Haemorrhage [Unknown]
  - Device related infection [Not Recovered/Not Resolved]
  - Gastrointestinal haemorrhage [Unknown]

NARRATIVE: CASE EVENT DATE: 20151015
